FAERS Safety Report 18258393 (Version 1)
Quarter: 2020Q3

REPORT INFORMATION
  Report Type: Other
  Country: US (occurrence: US)
  Receive Date: 20200911
  Receipt Date: 20200911
  Transmission Date: 20201103
  Serious: No
  Sender: FDA-Public Use
  Company Number: US-LEADIANT BIOSCIENCES INC-2019STPI000545

PATIENT

DRUGS (5)
  1. MATULANE [Suspect]
     Active Substance: PROCARBAZINE HYDROCHLORIDE
     Indication: BRAIN NEOPLASM MALIGNANT
     Dosage: 100MG ON DAYS 1?13, 150MG ON DAY 14
     Route: 048
     Dates: start: 20190211
  2. VINCRISTINE [Concomitant]
     Active Substance: VINCRISTINE
  3. LAMICTAL [Concomitant]
     Active Substance: LAMOTRIGINE
  4. XANAX [Concomitant]
     Active Substance: ALPRAZOLAM
  5. LUNESTA [Concomitant]
     Active Substance: ESZOPICLONE

REACTIONS (1)
  - Rash [Not Recovered/Not Resolved]
